FAERS Safety Report 11887462 (Version 3)
Quarter: 2016Q3

REPORT INFORMATION
  Report Type: Report from Study
  Country: US (occurrence: US)
  Receive Date: 20160105
  Receipt Date: 20160706
  Transmission Date: 20161109
  Serious: Yes (Hospitalization)
  Sender: FDA-Public Use
  Company Number: US-ASTRAZENECA-2015SF31377

PATIENT
  Age: 26121 Day
  Sex: Female

DRUGS (24)
  1. ACLIDINIUM BROMIDE [Suspect]
     Active Substance: ACLIDINIUM BROMIDE
     Indication: CHRONIC OBSTRUCTIVE PULMONARY DISEASE
     Dosage: RUN IN PERIOD
     Route: 055
     Dates: start: 20140822, end: 20141211
  2. ACLIDINIUM BROMIDE [Suspect]
     Active Substance: ACLIDINIUM BROMIDE
     Indication: CHRONIC OBSTRUCTIVE PULMONARY DISEASE
     Dosage: RUN IN PERIOD
     Route: 055
     Dates: start: 20141212, end: 20150308
  3. ACLIDINIUM BROMIDE [Suspect]
     Active Substance: ACLIDINIUM BROMIDE
     Indication: CHRONIC OBSTRUCTIVE PULMONARY DISEASE
     Route: 055
     Dates: start: 20150529, end: 20150820
  4. LEVOTHYROXINE. [Concomitant]
     Active Substance: LEVOTHYROXINE
     Indication: HYPOTHYROIDISM
     Dosage: 10 UG QD, QAM, QHS
     Route: 048
     Dates: start: 1996
  5. VITAMIN D WITH VITAMIN A [Concomitant]
     Indication: SUPPLEMENTATION THERAPY
     Dosage: 800/500 IU
     Route: 048
     Dates: start: 201403
  6. CLINDAMYCIN [Concomitant]
     Active Substance: CLINDAMYCIN\CLINDAMYCIN PHOSPHATE
     Indication: SUPPLEMENTATION THERAPY
     Dosage: 600.0MG AS REQUIRED
     Route: 048
     Dates: start: 201312
  7. CALCIUM [Concomitant]
     Active Substance: CALCIUM
     Indication: SUPPLEMENTATION THERAPY
     Route: 048
     Dates: start: 201303
  8. ZYPAN [Concomitant]
     Indication: SUPPLEMENTATION THERAPY
     Dosage: 1 OTHER BID
     Route: 048
     Dates: start: 20140805
  9. PAROTID PMG [Concomitant]
     Indication: SUPPLEMENTATION THERAPY
     Dosage: 1 OTHER BID
     Route: 048
     Dates: start: 20140805
  10. PRALUENT [Concomitant]
     Active Substance: ALIROCUMAB
     Indication: HYPERCHOLESTEROLAEMIA
     Dosage: 75 MG OTHER
     Route: 058
     Dates: start: 20151118
  11. MULTIZYME [Concomitant]
     Indication: SUPPLEMENTATION THERAPY
     Dosage: 1 OTHER QD,QAM,QHS
     Route: 048
     Dates: start: 20140603
  12. IBUPROFEN. [Concomitant]
     Active Substance: IBUPROFEN
     Indication: DENTAL DISORDER PROPHYLAXIS
     Dosage: 200.0MG AS REQUIRED
     Route: 048
     Dates: start: 2013
  13. ADVAIR HFA [Concomitant]
     Active Substance: FLUTICASONE PROPIONATE\SALMETEROL XINAFOATE
     Route: 055
     Dates: start: 2007
  14. ACLIDINIUM BROMIDE [Suspect]
     Active Substance: ACLIDINIUM BROMIDE
     Indication: CHRONIC OBSTRUCTIVE PULMONARY DISEASE
     Route: 055
     Dates: start: 20150309, end: 20150528
  15. LATANOPROST. [Concomitant]
     Active Substance: LATANOPROST
     Indication: OPEN ANGLE GLAUCOMA
     Dosage: 1 OTEHR QD, QAM, QHS
     Dates: start: 20121025
  16. TRIMETHOPRIM/SULFAMETHOXAZOLE [Concomitant]
     Active Substance: SULFAMETHOXAZOLE\TRIMETHOPRIM
     Indication: URINARY TRACT INFECTION BACTERIAL
     Dosage: 160/800 MG PRN
     Route: 048
     Dates: start: 2007
  17. BIOST SUPPLEMENT  - PROPRIETARY BLEND: VEAL BONE EXTRACT, CALCIUM L... [Concomitant]
     Indication: SUPPLEMENTATION THERAPY
     Dosage: 2 OTHER BID
     Route: 048
     Dates: start: 20140805
  18. PROSYNBIOTIC [Concomitant]
     Indication: SUPPLEMENTATION THERAPY
     Dosage: 280 MG QD, QAM, QHS
     Route: 048
     Dates: start: 201307
  19. PRO OMEGA (CONTAINS OMEGA 3S) [Concomitant]
     Indication: SUPPLEMENTATION THERAPY
     Dosage: 1280 MG QD, QAM, QHS
     Route: 048
     Dates: start: 201303
  20. PRALUENT [Concomitant]
     Active Substance: ALIROCUMAB
     Indication: PROPHYLAXIS
     Dosage: 75 MG OTHER
     Route: 058
     Dates: start: 20151118
  21. ASPIRIN. [Concomitant]
     Active Substance: ASPIRIN
     Indication: CARDIOVASCULAR EVENT PROPHYLAXIS
     Dosage: 81 MG QD, QAM, QHS
     Route: 048
     Dates: start: 20151029, end: 20151218
  22. ACLIDINIUM BROMIDE [Suspect]
     Active Substance: ACLIDINIUM BROMIDE
     Indication: CHRONIC OBSTRUCTIVE PULMONARY DISEASE
     Route: 055
     Dates: start: 20150821, end: 20151219
  23. LORATADINE. [Concomitant]
     Active Substance: LORATADINE
     Indication: RHINITIS ALLERGIC
     Dosage: 10 MG QD, QAM, QHS
     Route: 048
     Dates: start: 2000, end: 20151218
  24. IBUPROFEN. [Concomitant]
     Active Substance: IBUPROFEN
     Indication: ARTHRALGIA
     Dosage: 200.0MG AS REQUIRED
     Route: 048
     Dates: start: 2013

REACTIONS (1)
  - Cerebrovascular accident [Recovered/Resolved]

NARRATIVE: CASE EVENT DATE: 20151216
